FAERS Safety Report 7240503-8 (Version None)
Quarter: 2011Q1

REPORT INFORMATION
  Report Type: 
  Country: None (occurrence: None)
  Receive Date: 20110124
  Receipt Date: 20110121
  Transmission Date: 20110831
  Serious: Yes (Other)
  Sender: FDA-Public Use
  Company Number: US-PFIZER INC-2011015604

PATIENT
  Sex: Female
  Weight: 49 kg

DRUGS (3)
  1. CHANTIX [Suspect]
     Dosage: 1 MG, 2X/DAY
     Route: 048
     Dates: end: 20110114
  2. CHANTIX [Suspect]
     Indication: SMOKING CESSATION THERAPY
     Dosage: 0.5 MG, 1X/DAY
     Dates: start: 20101216
  3. PRISTIQ [Concomitant]
     Indication: DEPRESSION
     Dosage: UNK

REACTIONS (8)
  - IRRITABILITY [None]
  - RASH GENERALISED [None]
  - FEAR [None]
  - NIGHTMARE [None]
  - PSYCHOTIC DISORDER [None]
  - ANXIETY [None]
  - DEPRESSION [None]
  - INSOMNIA [None]
